FAERS Safety Report 10866670 (Version 2)
Quarter: 2015Q1

REPORT INFORMATION
  Report Type: Report from Study
  Country: CA (occurrence: None)
  Receive Date: 20150220
  Receipt Date: 20150312
  Transmission Date: 20150721
  Serious: Yes (Hospitalization)
  Sender: FDA-Public Use
  Company Number: 2015FE00393

PATIENT
  Age: 77 Year
  Sex: Male

DRUGS (7)
  1. PROCAL /00168201/ (SODIUM FLUORIDE) [Concomitant]
  2. DEGARELIX (DEGARELIX) POWDER AND SOLVENT FOR SOLUTION FOR INJECTION [Suspect]
     Active Substance: DEGARELIX
     Indication: PROSTATE CANCER
     Route: 058
     Dates: start: 20150103
  3. OLMETEC (OLMESARTAN MEDOXOMIL) [Concomitant]
     Active Substance: OLMESARTAN MEDOXOMIL
  4. ROSUVASTATIN [Concomitant]
     Active Substance: ROSUVASTATIN
  5. METOPROLOL [Concomitant]
     Active Substance: METOPROLOL
  6. PANTOPRAZOLE [Concomitant]
     Active Substance: PANTOPRAZOLE SODIUM
  7. MIRTAZAPINE. [Concomitant]
     Active Substance: MIRTAZAPINE

REACTIONS (7)
  - Metastasis [None]
  - Fatigue [None]
  - Blood urine present [None]
  - Disease progression [None]
  - Cardiac failure [None]
  - Asthenia [None]
  - Metastases to bone [None]

NARRATIVE: CASE EVENT DATE: 20150217
